FAERS Safety Report 8023688-5 (Version None)
Quarter: 2011Q4

REPORT INFORMATION
  Report Type: 
  Country: None (occurrence: None)
  Receive Date: 20111123
  Receipt Date: 20110818
  Transmission Date: 20120403
  Serious: No
  Sender: FDA-Public Use
  Company Number: 336791

PATIENT
  Sex: Male

DRUGS (1)
  1. VICTOZA [Suspect]
     Indication: PRODUCT USED FOR UNKNOWN INDICATION

REACTIONS (2)
  - BLOOD GLUCOSE DECREASED [None]
  - VISION BLURRED [None]
